FAERS Safety Report 7343709-2 (Version None)
Quarter: 2011Q1

REPORT INFORMATION
  Report Type: 
  Country: None (occurrence: None)
  Receive Date: 20110310
  Receipt Date: 20101115
  Transmission Date: 20110831
  Serious: No
  Sender: FDA-Public Use
  Company Number: A0892502A

PATIENT
  Age: 30 Year
  Sex: Male

DRUGS (2)
  1. NICORETTE [Suspect]
     Indication: TOBACCO USER
  2. NICORETTE (MINT) [Suspect]
     Indication: TOBACCO USER

REACTIONS (2)
  - PRODUCT QUALITY ISSUE [None]
  - INTENTIONAL DRUG MISUSE [None]
